FAERS Safety Report 8050246-9 (Version None)
Quarter: 2012Q1

REPORT INFORMATION
  Report Type: 
  Country: None (occurrence: None)
  Receive Date: 20120117
  Receipt Date: 20120110
  Transmission Date: 20120608
  Serious: Yes (Other)
  Sender: FDA-Public Use
  Company Number: US-PFIZER INC-2012007943

PATIENT
  Sex: Female
  Weight: 82.086 kg

DRUGS (6)
  1. LYRICA [Suspect]
     Indication: PAIN
     Dosage: 75 MG, 2X/DAY
     Route: 048
     Dates: end: 20111201
  2. FENTANYL [Suspect]
     Dosage: 75 UG, 1 PATCH EVERY 72HRS
     Route: 062
     Dates: start: 20111001, end: 20111201
  3. LYRICA [Suspect]
     Dosage: 50 MG, 1 TAB AM/1 TAB PM
     Route: 048
     Dates: start: 20111201
  4. FENTANYL [Suspect]
     Dosage: 100 UG, 1 PATCH EVERY 72HRS
     Route: 062
     Dates: start: 20110801, end: 20111001
  5. FENTANYL [Suspect]
     Indication: PAIN
     Dosage: 50 UG, 1 PATCH EVERY 72HRS
     Route: 062
     Dates: end: 20110801
  6. FENTANYL [Suspect]
     Dosage: 75 UG, 1 PATCH EVERY 72HRS
     Route: 062
     Dates: start: 20111201

REACTIONS (14)
  - COLD SWEAT [None]
  - DYSPNOEA [None]
  - OEDEMA PERIPHERAL [None]
  - CONFUSIONAL STATE [None]
  - DRUG INEFFECTIVE [None]
  - FEELING DRUNK [None]
  - BLOOD DISORDER [None]
  - BLOOD PRESSURE DECREASED [None]
  - NAUSEA [None]
  - VOMITING [None]
  - SOMNOLENCE [None]
  - WEIGHT INCREASED [None]
  - VENTRICULAR HYPERTROPHY [None]
  - PERIPHERAL COLDNESS [None]
